FAERS Safety Report 8943091 (Version 1)
Quarter: 2012Q4

REPORT INFORMATION
  Report Type: Spontaneous
  Country: US (occurrence: None)
  Receive Date: 20121121
  Receipt Date: 20121121
  Transmission Date: 20130627
  Serious: Yes (Life-Threatening, Other)
  Sender: FDA-Public Use
  Company Number: 001404768A

PATIENT
  Age: 44 Year
  Sex: Female

DRUGS (9)
  1. MEANINGFUL BEAUTY CINDY CRAWFORD ANTIOXIDANT SPF 20 UVA/UVB [Suspect]
     Dosage: once daily dermal
     Dates: start: 20121015, end: 20121022
  2. MEANINGFUL BEAUTY CINDY CRAWFORD SKIN BRIGHTENING DECOLLETE AND NECK TREATMENT SPF 15 [Suspect]
     Dosage: once daily dermal
     Dates: start: 20121015, end: 20121022
  3. TOPAMAX [Concomitant]
  4. SYNTHROID [Concomitant]
  5. PREDNISONE [Concomitant]
  6. AMBIEN [Concomitant]
  7. EPIPEN [Concomitant]
  8. ATIVAN [Concomitant]
  9. BENADRYL [Concomitant]

REACTIONS (2)
  - Anaphylactic reaction [None]
  - Panic attack [None]
